FAERS Safety Report 19410081 (Version 2)
Quarter: 2025Q3

REPORT INFORMATION
  Report Type: Spontaneous
  Country: EU (occurrence: EU)
  Receive Date: 20210614
  Receipt Date: 20250712
  Transmission Date: 20251021
  Serious: Yes (Death, Other)
  Sender: AUROBINDO
  Company Number: EU-AUROBINDO-AUR-APL-2021-023902

PATIENT
  Age: 87 Year
  Sex: Male

DRUGS (9)
  1. ASPIRIN [Suspect]
     Active Substance: ASPIRIN
     Indication: Myocardial infarction
     Route: 065
  2. CITALOPRAM [Suspect]
     Active Substance: CITALOPRAM
     Indication: Panic disorder
     Route: 065
  3. OLANZAPINE [Concomitant]
     Active Substance: OLANZAPINE
     Indication: Panic disorder
     Dosage: 5 MILLIGRAM, ONCE A DAY
     Route: 065
  4. ZOPICLONE [Concomitant]
     Active Substance: ZOPICLONE
     Indication: Panic disorder
     Dosage: 7.5 MILLIGRAM, ONCE A DAY
     Route: 065
  5. NITRENDIPINE [Concomitant]
     Active Substance: NITRENDIPINE
     Indication: Product used for unknown indication
     Dosage: 20 MILLIGRAM, ONCE A DAY
     Route: 065
  6. BISOPROLOL [Concomitant]
     Active Substance: BISOPROLOL
     Indication: Product used for unknown indication
     Dosage: 5 MILLIGRAM, ONCE A DAY
     Route: 065
  7. LISINOPRIL AND HYDROCHLOROTHIAZIDE [Concomitant]
     Active Substance: HYDROCHLOROTHIAZIDE\LISINOPRIL
     Indication: Product used for unknown indication
     Route: 065
  8. BUPRENORPHINE [Concomitant]
     Active Substance: BUPRENORPHINE
     Indication: Product used for unknown indication
     Route: 065
  9. VITAMIN B12 [Concomitant]
     Active Substance: CYANOCOBALAMIN
     Indication: Product used for unknown indication
     Dosage: 1000 MICROGRAM, EVERY WEEK
     Route: 065

REACTIONS (2)
  - Gastrointestinal haemorrhage [Fatal]
  - Myocardial infarction [Fatal]
